FAERS Safety Report 21348969 (Version 2)
Quarter: 2022Q3

REPORT INFORMATION
  Report Type: Spontaneous
  Country: US (occurrence: US)
  Receive Date: 20220919
  Receipt Date: 20220929
  Transmission Date: 20221027
  Serious: No
  Sender: FDA-Public Use
  Company Number: US-PFIZER INC-202201093375

PATIENT
  Age: 10 Year
  Sex: Female

DRUGS (1)
  1. GENOTROPIN [Suspect]
     Active Substance: SOMATROPIN
     Indication: Short stature
     Dosage: 8 MG, DAILY (4 CLICKS, SO 8MG EACH NIGHT)
     Dates: start: 201911

REACTIONS (2)
  - Drug dose omission by device [Not Recovered/Not Resolved]
  - Device information output issue [Not Recovered/Not Resolved]

NARRATIVE: CASE EVENT DATE: 20220821
